FAERS Safety Report 8794810 (Version 2)
Quarter: 2015Q2

REPORT INFORMATION
  Report Type: Report from Study
  Country: US (occurrence: US)
  Receive Date: 20120917
  Receipt Date: 20150619
  Transmission Date: 20150821
  Serious: Yes (Death)
  Sender: FDA-Public Use
  Company Number: US-ROCHE-1127491

PATIENT
  Sex: Female

DRUGS (9)
  1. DECADRON [Concomitant]
     Active Substance: DEXAMETHASONE
     Route: 042
  2. AVASTIN [Suspect]
     Active Substance: BEVACIZUMAB
     Indication: RENAL CANCER
     Route: 042
     Dates: start: 20040722
  3. KLONOPIN [Concomitant]
     Active Substance: CLONAZEPAM
     Route: 048
  4. ACETAMINOPHEN. [Concomitant]
     Active Substance: ACETAMINOPHEN
     Route: 048
  5. CREATININE [Concomitant]
     Active Substance: CREATININE
  6. OXYCODONE [Concomitant]
     Active Substance: OXYCODONE
     Route: 048
  7. KYTRIL [Concomitant]
     Active Substance: GRANISETRON HYDROCHLORIDE
     Route: 065
  8. GLUCOSE [Concomitant]
     Active Substance: DEXTROSE
  9. IRESSA [Concomitant]
     Active Substance: GEFITINIB

REACTIONS (4)
  - Death [Fatal]
  - Off label use [Unknown]
  - Abdominal pain [Unknown]
  - Back pain [Unknown]
